FAERS Safety Report 5109721-9 (Version None)
Quarter: 2006Q3

REPORT INFORMATION
  Report Type: 
  Country: None (occurrence: None)
  Receive Date: 20060918
  Receipt Date: 20060907
  Transmission Date: 20061208
  Serious: Yes (Hospitalization)
  Sender: FDA-Public Use
  Company Number: OMPQ-NO-0609S-1362

PATIENT
  Age: 62 Year
  Sex: Female

DRUGS (1)
  1. OMNIPAQUE 140 [Suspect]
     Indication: DRUG USE FOR UNKNOWN INDICATION
     Dosage: 100 ML, I.V.
     Route: 042
     Dates: start: 20060804, end: 20060804

REACTIONS (3)
  - DEAFNESS [None]
  - GAIT DISTURBANCE [None]
  - HYPOKALAEMIA [None]
